FAERS Safety Report 10923200 (Version 3)
Quarter: 2015Q2

REPORT INFORMATION
  Report Type: Spontaneous
  Country: US (occurrence: US)
  Receive Date: 20150317
  Receipt Date: 20150521
  Transmission Date: 20150821
  Serious: Yes (Life-Threatening, Hospitalization)
  Sender: FDA-Public Use
  Company Number: US-BAYER-2015-037922

PATIENT
  Age: 28 Year
  Sex: Female
  Weight: 63 kg

DRUGS (3)
  1. DIFLUCAN [Concomitant]
     Active Substance: FLUCONAZOLE
  2. LIDOCAINE. [Concomitant]
     Active Substance: LIDOCAINE
  3. MIRENA [Suspect]
     Active Substance: LEVONORGESTREL
     Indication: CONTRACEPTION
     Dosage: 20 MCG/24HR, CONT
     Route: 015
     Dates: start: 20121220, end: 20130508

REACTIONS (6)
  - General physical health deterioration [None]
  - Injury [None]
  - Abdominal pain [None]
  - Uterine perforation [None]
  - Infection [None]
  - Device issue [None]

NARRATIVE: CASE EVENT DATE: 201303
